FAERS Safety Report 20000988 (Version 2)
Quarter: 2021Q4

REPORT INFORMATION
  Report Type: Report from Study
  Country: PK (occurrence: PK)
  Receive Date: 20211027
  Receipt Date: 20211103
  Transmission Date: 20220303
  Serious: Yes (Death)
  Sender: FDA-Public Use
  Company Number: PK-NOVARTISPH-NVSC2021PK244734

PATIENT
  Age: 47 Year
  Sex: Female

DRUGS (1)
  1. EXELON [Suspect]
     Active Substance: RIVASTIGMINE TARTRATE
     Indication: Dementia
     Dosage: QD (18MG/10CM, DERMAL)
     Route: 065
     Dates: start: 20190421, end: 202110

REACTIONS (4)
  - COVID-19 [Fatal]
  - Pyrexia [Fatal]
  - Cough [Fatal]
  - Fatigue [Fatal]

NARRATIVE: CASE EVENT DATE: 20211008
